FAERS Safety Report 11686774 (Version 11)
Quarter: 2018Q2

REPORT INFORMATION
  Report Type: Report from Study
  Country: US (occurrence: US)
  Receive Date: 20151030
  Receipt Date: 20180426
  Transmission Date: 20180711
  Serious: Yes (Other)
  Sender: FDA-Public Use
  Company Number: PHHY2014US083924

PATIENT
  Age: 28 Year
  Sex: Male

DRUGS (2)
  1. SOLU-MEDROL [Concomitant]
     Active Substance: METHYLPREDNISOLONE SODIUM SUCCINATE
     Indication: MULTIPLE SCLEROSIS RELAPSE
     Dosage: UNK
     Route: 065
     Dates: start: 20170623, end: 20170626
  2. GILENYA [Suspect]
     Active Substance: FINGOLIMOD HYDROCHLORIDE
     Indication: MULTIPLE SCLEROSIS
     Dosage: 0.5 MG, QD
     Route: 048

REACTIONS (45)
  - Eye pain [Recovered/Resolved]
  - Diarrhoea [Recovered/Resolved]
  - Cognitive disorder [Unknown]
  - Abdominal pain upper [Recovered/Resolved]
  - Haematochezia [Unknown]
  - Visual impairment [Unknown]
  - Visual field defect [Unknown]
  - Gait disturbance [Unknown]
  - Pain [Recovered/Resolved]
  - Fatigue [Unknown]
  - Vertigo [Recovered/Resolved]
  - Ocular hypertension [Unknown]
  - Fall [Unknown]
  - Thermal burn [Unknown]
  - Micturition urgency [Unknown]
  - Neuralgia [Recovered/Resolved]
  - Constipation [Recovered/Resolved]
  - Erectile dysfunction [Unknown]
  - Musculoskeletal chest pain [Recovered/Resolved]
  - Skin papilloma [Unknown]
  - Multiple sclerosis relapse [Unknown]
  - Pain in extremity [Unknown]
  - Fatigue [Recovered/Resolved]
  - Nausea [Recovered/Resolved]
  - Photophobia [Recovered/Resolved]
  - Neuralgia [Recovered/Resolved]
  - Constipation [Recovered/Resolved]
  - Fall [Recovered/Resolved]
  - Post herpetic neuralgia [Recovered/Resolved]
  - Insomnia [Unknown]
  - Hemiparesis [Recovered/Resolved]
  - Urinary incontinence [Unknown]
  - Dysuria [Recovered/Resolved]
  - Blindness transient [Unknown]
  - Sensory disturbance [Unknown]
  - Depression [Unknown]
  - Impetigo [Recovered/Resolved]
  - Abnormal dreams [Unknown]
  - Gastrooesophageal reflux disease [Unknown]
  - Flat affect [Recovered/Resolved]
  - Dermal cyst [Unknown]
  - Balance disorder [Unknown]
  - Urinary retention [Recovered/Resolved]
  - Headache [Unknown]
  - Abdominal discomfort [Recovered/Resolved]

NARRATIVE: CASE EVENT DATE: 20130517
